FAERS Safety Report 6328900-6 (Version None)
Quarter: 2009Q3

REPORT INFORMATION
  Report Type: 
  Country: None (occurrence: None)
  Receive Date: 20090824
  Receipt Date: 20090824
  Transmission Date: 20100115
  Serious: No
  Sender: FDA-Public Use
  Company Number: None

PATIENT

DRUGS (1)
  1. ZICAM ^EXTREME DECONGESTANT RELIEF^ [Suspect]

REACTIONS (1)
  - ARTHRALGIA [None]
